FAERS Safety Report 8538159-7 (Version None)
Quarter: 2012Q3

REPORT INFORMATION
  Report Type: 
  Country: None (occurrence: None)
  Receive Date: 20120726
  Receipt Date: 20120719
  Transmission Date: 20120928
  Serious: Yes (Death, Life-Threatening, Hospitalization, Disabling, Other)
  Sender: FDA-Public Use
  Company Number: DE-009507513-2011SP057312

PATIENT

DRUGS (35)
  1. IRINOTECAN HYDROCHLORIDE [Suspect]
     Indication: GLIOBLASTOMA MULTIFORME
     Dosage: 606 MG, QOW
     Route: 042
     Dates: start: 20100914
  2. DEXAMETHASONE [Concomitant]
     Dosage: 2 MG, UNK
     Dates: start: 20111124, end: 20111127
  3. PANTOPRAZOLE [Concomitant]
     Dosage: UPDATE (24NOV2011)
     Dates: start: 20100625, end: 20100628
  4. ATROPINE SULFATE [Concomitant]
     Indication: PRODUCT USED FOR UNKNOWN INDICATION
     Dosage: UPDATE (24NOV2011)
     Dates: start: 20101112, end: 20101112
  5. ASPIRIN [Concomitant]
     Indication: PRODUCT USED FOR UNKNOWN INDICATION
     Dosage: 100 MG, UNK
     Dates: start: 20111111
  6. DEXAMETHASONE [Concomitant]
     Dosage: UPDATE (24NOV2011)
     Dates: start: 20100625, end: 20110625
  7. RAMIPRIL [Concomitant]
     Indication: PRODUCT USED FOR UNKNOWN INDICATION
     Dosage: UPDATE (24NOV2011)
     Dates: start: 20110409, end: 20110506
  8. TEMOZOLOMIDE [Suspect]
     Indication: GLIOBLASTOMA MULTIFORME
     Dosage: 1 IN 5 D
     Route: 048
     Dates: start: 20111114, end: 20111117
  9. DEXAMETHASONE [Concomitant]
     Indication: PRODUCT USED FOR UNKNOWN INDICATION
     Dosage: 24 MG, UNK
     Dates: start: 20111001
  10. DEXAMETHASONE [Concomitant]
     Dosage: 8 MG, UNK
     Dates: start: 20111112, end: 20111117
  11. LEUCOVORIN CALCIUM [Concomitant]
     Indication: PRODUCT USED FOR UNKNOWN INDICATION
     Dosage: 5 MG, UNK
     Dates: start: 20100706
  12. METOCLOPRAMIDE [Concomitant]
     Indication: PRODUCT USED FOR UNKNOWN INDICATION
     Dosage: 60 GTT, UNK
     Dates: start: 20100914
  13. ORGACARPIN [Concomitant]
     Dosage: UPDATE (24NOV2011)
     Dates: start: 20100625
  14. DEXAMETHASONE [Concomitant]
     Dosage: UPDATE (24NOV2011)
     Dates: start: 20100701, end: 20100704
  15. ATROPINE SULFATE [Concomitant]
     Dosage: UPDATE (24NOV2011)
     Dates: start: 20110107, end: 20110107
  16. TETRAZEPAM [Concomitant]
     Indication: PRODUCT USED FOR UNKNOWN INDICATION
     Dosage: 50 MG, UNK
     Dates: end: 20110424
  17. RAMIPRIL [Concomitant]
     Indication: PRODUCT USED FOR UNKNOWN INDICATION
     Dosage: 20 MG, UNK
  18. DEXAMETHASONE [Concomitant]
     Dosage: UPDATE (24NOV2011)
     Dates: start: 20100606, end: 20100702
  19. DIMENHYDRINATE [Concomitant]
     Indication: PRODUCT USED FOR UNKNOWN INDICATION
     Dosage: UPDATE (24NOV2011)
     Dates: start: 20100831, end: 20101029
  20. ONDANSETRON [Concomitant]
     Indication: PRODUCT USED FOR UNKNOWN INDICATION
     Dosage: UPDATE (24NOV2011)
     Dates: start: 20100914, end: 20100914
  21. ORGACARPIN [Concomitant]
     Indication: PRODUCT USED FOR UNKNOWN INDICATION
     Dosage: 450 MG, UNK
     Dates: start: 20100625
  22. DEXAMETHASONE [Concomitant]
     Dosage: UPDATE (24NOV2011)
     Dates: start: 20100705
  23. ACYCLOVIR [Concomitant]
     Indication: PRODUCT USED FOR UNKNOWN INDICATION
     Dosage: UPDATE (24NOV2011)
     Dates: start: 20100726, end: 20101001
  24. DIAZEPAM [Concomitant]
     Dosage: UPDATE (24NOV2011)
     Dates: start: 20100626, end: 20101029
  25. THIAMINE HYDROCHLORIDE [Concomitant]
     Indication: PRODUCT USED FOR UNKNOWN INDICATION
     Dosage: 100 MG, UNK
     Dates: end: 20100706
  26. SIMVASTATIN [Concomitant]
     Indication: PRODUCT USED FOR UNKNOWN INDICATION
     Dosage: 2.5 MG, UNK
  27. TEGRETOL [Concomitant]
     Indication: PRODUCT USED FOR UNKNOWN INDICATION
     Dosage: 300 MG, UNK
     Dates: start: 20111001
  28. PANTOPRAZOLE [Concomitant]
     Dosage: UPDATE (24NOV2011)
     Dates: start: 20100629, end: 20100629
  29. NOVALGIN (ACETAMINOPHEN (+) CAFFEINE (+) PROPYPHENAZONE) [Concomitant]
     Indication: PRODUCT USED FOR UNKNOWN INDICATION
     Dosage: UPDATE (24NOV2011)
     Dates: start: 20100817, end: 20101029
  30. LYRICA [Concomitant]
     Indication: PRODUCT USED FOR UNKNOWN INDICATION
     Dosage: UPDATE (24NOV2011)
     Dates: start: 20101029, end: 20101126
  31. PANTOPRAZOLE [Concomitant]
     Indication: PRODUCT USED FOR UNKNOWN INDICATION
     Dosage: 40 MG, UNK
     Dates: start: 20101116
  32. DIAZEPAM [Concomitant]
     Indication: PRODUCT USED FOR UNKNOWN INDICATION
     Dosage: UPDATE (24NOV2011)
     Dates: start: 20100625, end: 20100625
  33. BEVACIZUMAB [Suspect]
     Indication: GLIOBLASTOMA MULTIFORME
     Dosage: 3690 MG, QOW
     Route: 042
     Dates: start: 20100803
  34. EBASTINE [Concomitant]
     Indication: PRODUCT USED FOR UNKNOWN INDICATION
     Dosage: 10 MG, UNK
     Dates: start: 20101029
  35. TORSEMIDE [Concomitant]
     Indication: PRODUCT USED FOR UNKNOWN INDICATION
     Dosage: UPDATE (24NOV2011)
     Dates: start: 20100726, end: 20101029

REACTIONS (4)
  - LEUKOPENIA [None]
  - THROMBOCYTOPENIA [None]
  - EPISTAXIS [None]
  - CEREBRAL INFARCTION [None]
